FAERS Safety Report 18255936 (Version 2)
Quarter: 2020Q4

REPORT INFORMATION
  Report Type: Spontaneous
  Country: IT (occurrence: IT)
  Receive Date: 20200910
  Receipt Date: 20201005
  Transmission Date: 20210113
  Serious: Yes (Death, Hospitalization, Other)
  Sender: FDA-Public Use
  Company Number: IT-BRISTOL-MYERS SQUIBB COMPANY-BMS-2020-072210

PATIENT
  Age: 74 Year
  Sex: Male

DRUGS (1)
  1. OPDIVO [Suspect]
     Active Substance: NIVOLUMAB
     Indication: MALIGNANT MELANOMA
     Dosage: 480 MILLIGRAM, 1 CYCLICAL
     Route: 042
     Dates: start: 20200714, end: 20200714

REACTIONS (6)
  - Myocarditis [Fatal]
  - Gamma-glutamyltransferase increased [Fatal]
  - Visual acuity reduced [Fatal]
  - Diplopia [Fatal]
  - Hypertransaminasaemia [Fatal]
  - Asthenia [Fatal]

NARRATIVE: CASE EVENT DATE: 20200806
